FAERS Safety Report 8976360 (Version 1)
Quarter: 2012Q4

REPORT INFORMATION
  Report Type: 
  Country: US (occurrence: US)
  Receive Date: 20121219
  Receipt Date: 20121219
  Transmission Date: 20130627
  Serious: No
  Sender: FDA-Public Use
  Company Number: US-AMGEN-USASP2012054839

PATIENT
  Age: 71 Year
  Sex: Female
  Weight: 69.52 kg

DRUGS (8)
  1. PROLIA [Suspect]
     Indication: OSTEOPOROSIS POSTMENOPAUSAL
     Dosage: 60 mg, q6mo
     Dates: start: 20110915
  2. PREDNISONE [Concomitant]
     Indication: RASH
     Dosage: UNK
  3. B6 [Concomitant]
     Dosage: UNK
  4. B12 [Concomitant]
     Dosage: UNK
  5. B1 [Concomitant]
     Dosage: UNK
  6. VITAMIN E [Concomitant]
     Dosage: UNK
  7. VITAMIN D2 + CALCIUM [Concomitant]
     Dosage: UNK
  8. CORTICOSTEROIDS [Concomitant]
     Dosage: UNK

REACTIONS (3)
  - Toothache [Not Recovered/Not Resolved]
  - Gingival pain [Not Recovered/Not Resolved]
  - Oedema peripheral [Not Recovered/Not Resolved]
